FAERS Safety Report 5637412-4 (Version None)
Quarter: 2008Q1

REPORT INFORMATION
  Report Type: 
  Country: None (occurrence: None)
  Receive Date: 20080225
  Receipt Date: 20080213
  Transmission Date: 20080703
  Serious: Yes (Other)
  Sender: FDA-Public Use
  Company Number: JP-PFIZER INC-2008014398

PATIENT
  Age: 92 Year
  Sex: Male

DRUGS (1)
  1. ZYVOX [Suspect]
     Dosage: DAILY DOSE:1200MG
     Route: 042

REACTIONS (1)
  - VENTRICULAR EXTRASYSTOLES [None]
